FAERS Safety Report 4354769-5 (Version None)
Quarter: 2004Q2

REPORT INFORMATION
  Report Type: 
  Country: None (occurrence: None)
  Receive Date: 20040507
  Receipt Date: 20040415
  Transmission Date: 20050107
  Serious: Yes (Death, Other)
  Sender: FDA-Public Use
  Company Number: US-BRISTOL-MYERS SQUIBB COMPANY-12577649

PATIENT
  Age: 14 Year
  Sex: Female

DRUGS (5)
  1. IFOSFAMIDE [Suspect]
     Indication: BONE SARCOMA
     Route: 042
  2. ETOPOSIDE [Concomitant]
     Indication: BONE SARCOMA
  3. METHOTREXATE [Concomitant]
     Indication: BONE SARCOMA
  4. DOXORUBICIN HCL [Concomitant]
     Indication: BONE SARCOMA
  5. CISPLATIN [Concomitant]
     Indication: BONE SARCOMA

REACTIONS (2)
  - BONE SARCOMA [None]
  - PREMATURE MENOPAUSE [None]
